FAERS Safety Report 20818869 (Version 1)
Quarter: 2022Q2

REPORT INFORMATION
  Report Type: Spontaneous
  Country: US (occurrence: None)
  Receive Date: 20220511
  Receipt Date: 20220511
  Transmission Date: 20220721
  Serious: Yes (Other)
  Sender: FDA-Public Use
  Company Number: None

PATIENT
  Age: 59 Year
  Sex: Female
  Weight: 63 kg

DRUGS (4)
  1. KERANIQUE 2% HAIR REGROWTH TREATMENT FOR WOMEN [Suspect]
     Active Substance: MINOXIDIL
     Indication: Alopecia
     Dosage: OTHER QUANTITY : 6 SPRAY(S);?FREQUENCY : TWICE A DAY;?
     Route: 061
     Dates: start: 20220505, end: 20220507
  2. Multi-vit QD [Concomitant]
  3. Vit D QD [Concomitant]
  4. Vit B complex qwk [Concomitant]

REACTIONS (8)
  - Swelling face [None]
  - Swelling of eyelid [None]
  - Pruritus [None]
  - Pruritus [None]
  - Application site reaction [None]
  - Rash [None]
  - Rash [None]
  - Hypersensitivity [None]

NARRATIVE: CASE EVENT DATE: 20220506
